FAERS Safety Report 23369342 (Version 1)
Quarter: 2024Q1

REPORT INFORMATION
  Report Type: Spontaneous
  Country: CN (occurrence: CN)
  Receive Date: 20240105
  Receipt Date: 20240105
  Transmission Date: 20240410
  Serious: Yes (Hospitalization, Other)
  Sender: FDA-Public Use
  Company Number: CN-Accord-399330

PATIENT

DRUGS (4)
  1. QUETIAPINE FUMARATE [Suspect]
     Active Substance: QUETIAPINE FUMARATE
     Indication: Depression
     Dosage: 0.1 G EACH NIGHT
  2. AMLODIPINE [Concomitant]
     Active Substance: AMLODIPINE BESYLATE
     Indication: Hypertension
     Dosage: TABLETS (ONCE DAILY)
  3. MAGNESIUM [Concomitant]
     Active Substance: MAGNESIUM
     Indication: Depression
     Dosage: EXTENDED-RELEASE TABLETS (0.25 G 12 HOURLY)
  4. DULOXETINE HYDROCHLORIDE [Concomitant]
     Active Substance: DULOXETINE HYDROCHLORIDE
     Indication: Depression
     Dosage: ENTERIC CAPSULES (40 MG EACH NIGHT

REACTIONS (2)
  - Hypotension [Recovered/Resolved]
  - Arteriospasm coronary [Recovered/Resolved]
